FAERS Safety Report 9161541 (Version 1)
Quarter: 2012Q4

REPORT INFORMATION
  Report Type: 
  Country: US (occurrence: US)
  Receive Date: 20121221
  Receipt Date: 20121221
  Transmission Date: 20130627
  Serious: Yes (Other)
  Sender: FDA-Public Use
  Company Number: US-RB-047898-12

PATIENT
  Age: 22 Year
  Sex: Male

DRUGS (5)
  1. MUCINEX FAST MAX ADULT COLD FLU THROAT (ACETAMINOPHEN) [Suspect]
     Indication: PRODUCT USED FOR UNKNOWN INDICATION
     Route: 048
     Dates: start: 20121214
  2. MUCINEX FAST MAX ADULT COLD FLU THROAT (DEXTROMETHORPHAN HYDROBROMIDE) [Suspect]
  3. MUCINEX FAST MAX ADULT COLD FLU THROAT (GUAIFENESIN) [Suspect]
  4. MUCINEX FAST MAX ADULT COLD FLU THROAT (PHENYLEPHRINE HYDROCHLORIDE) [Suspect]
  5. SUBOXONE [Concomitant]
     Indication: PRODUCT USED FOR UNKNOWN INDICATION

REACTIONS (1)
  - Anxiety [Not Recovered/Not Resolved]
